FAERS Safety Report 11694779 (Version 1)
Quarter: 2015Q4

REPORT INFORMATION
  Report Type: Report from Study
  Country: CA (occurrence: CA)
  Receive Date: 20151103
  Receipt Date: 20151103
  Transmission Date: 20160304
  Serious: Yes (Other)
  Sender: FDA-Public Use
  Company Number: CA-JNJFOC-20150925686

PATIENT
  Age: 59 Year
  Sex: Male
  Weight: 116.9 kg

DRUGS (6)
  1. SOPRESSOR [Concomitant]
     Route: 065
  2. REMICADE [Suspect]
     Active Substance: INFLIXIMAB
     Indication: ANKYLOSING SPONDYLITIS
     Route: 042
     Dates: start: 20110510
  3. XARELTO [Concomitant]
     Active Substance: RIVAROXABAN
     Route: 065
  4. ASAPHEN [Concomitant]
     Active Substance: ASPIRIN
     Route: 065
  5. LIPITOR [Concomitant]
     Active Substance: ATORVASTATIN CALCIUM
     Route: 065
  6. ALTACE [Concomitant]
     Active Substance: RAMIPRIL
     Route: 065

REACTIONS (5)
  - Mass [Not Recovered/Not Resolved]
  - Cerebrovascular accident [Recovered/Resolved]
  - Headache [Not Recovered/Not Resolved]
  - Visual impairment [Not Recovered/Not Resolved]
  - Ophthalmoplegia [Recovered/Resolved]

NARRATIVE: CASE EVENT DATE: 201509
